FAERS Safety Report 4970246-2 (Version None)
Quarter: 2006Q2

REPORT INFORMATION
  Report Type: 
  Country: None (occurrence: None)
  Receive Date: 20060406
  Receipt Date: 20060330
  Transmission Date: 20061013
  Serious: Yes (Death)
  Sender: FDA-Public Use
  Company Number: 2006-140416-NL

PATIENT
  Age: 67 Year
  Sex: Female

DRUGS (3)
  1. MIRTAZAPINE [Suspect]
     Indication: MAJOR DEPRESSION
  2. MIRTAZAPINE [Suspect]
     Indication: SUICIDE ATTEMPT
  3. PARACETAMOL [Suspect]

REACTIONS (7)
  - ASPHYXIA [None]
  - DEPRESSION [None]
  - DROWNING [None]
  - INSOMNIA [None]
  - MIDDLE INSOMNIA [None]
  - SEDATION [None]
  - SUICIDE ATTEMPT [None]
